FAERS Safety Report 4298470-5 (Version None)
Quarter: 2004Q1

REPORT INFORMATION
  Report Type: 
  Country: None (occurrence: None)
  Receive Date: 20040218
  Receipt Date: 20030925
  Transmission Date: 20041129
  Serious: No
  Sender: FDA-Public Use
  Company Number: US-BRISTOL-MYERS SQUIBB COMPANY-12394342

PATIENT
  Age: 39 Year
  Sex: Female
  Weight: 118 kg

DRUGS (2)
  1. STADOL [Suspect]
     Indication: MIGRAINE
     Dosage: USUALLY USED 1 SPRAY AS NEEDED, DID NOT OBTAIN RELIEF WITH 2 OR 3 SPRAYS
     Route: 045
  2. PREMARIN [Concomitant]

REACTIONS (1)
  - DRUG INEFFECTIVE [None]
